FAERS Safety Report 25246824 (Version 1)
Quarter: 2025Q2

REPORT INFORMATION
  Report Type: Spontaneous
  Country: JP (occurrence: JP)
  Receive Date: 20250428
  Receipt Date: 20250428
  Transmission Date: 20250716
  Serious: Yes (Hospitalization, Other)
  Sender: MERCK SHARP & DOHME LLC
  Company Number: JP-ONO-2025JP007288

PATIENT
  Age: 5 Decade
  Sex: Male

DRUGS (4)
  1. SITAGLIPTIN [Suspect]
     Active Substance: SITAGLIPTIN
     Indication: Oedema peripheral
     Dosage: 50 MG, EVERYDAY
     Route: 048
  2. SITAGLIPTIN [Suspect]
     Active Substance: SITAGLIPTIN
     Indication: Oedema peripheral
     Route: 048
  3. VOGLIBOSE [Concomitant]
     Active Substance: VOGLIBOSE
     Indication: Oedema peripheral
     Route: 048
  4. VALSARTAN [Concomitant]
     Active Substance: VALSARTAN
     Indication: Oedema peripheral
     Dosage: 80 MG, EVERYDAY
     Route: 048

REACTIONS (2)
  - Hypoglycaemic coma [Unknown]
  - Prescription drug used without a prescription [Unknown]
